FAERS Safety Report 19638341 (Version 1)
Quarter: 2021Q3

REPORT INFORMATION
  Report Type: Spontaneous
  Country: GB (occurrence: GB)
  Receive Date: 20210729
  Receipt Date: 20210729
  Transmission Date: 20211014
  Serious: Yes (Other)
  Sender: FDA-Public Use
  Company Number: GB-009507513-2107GBR008434

PATIENT
  Age: 85 Year
  Sex: Male

DRUGS (16)
  1. ZOPICLONE [Concomitant]
     Active Substance: ZOPICLONE
     Dosage: 1 AT NIGHT, WHEN REQUIRED AS DIRECTED (3.75 MG,AS REQUIRED)
     Dates: start: 20210422
  2. RAMIPRIL. [Concomitant]
     Active Substance: RAMIPRIL
     Dosage: 2.5 MG DAILY (2.5 MG,1 IN 1 D)
     Dates: start: 20210422
  3. APIXABAN [Concomitant]
     Active Substance: APIXABAN
     Dosage: 2.5 MG
     Dates: start: 20210422
  4. PARACETAMOL [Concomitant]
     Active Substance: ACETAMINOPHEN
     Dosage: TWO TO BE TAKEN EVERY 4?6 HOURS, WHEN NECESSARY (1000 MG,AS REQUIRED)
     Dates: start: 20210528
  5. TIMOLOL MALEATE. [Suspect]
     Active Substance: TIMOLOL MALEATE
     Dosage: 20 MG/ML, 5 MG/ML
     Route: 050
  6. MIRTAZAPINE. [Concomitant]
     Active Substance: MIRTAZAPINE
     Dosage: 45 MG DAILY (45 MG,1 IN 1 D)
     Dates: start: 20210422
  7. DORZOLAMIDE HYDROCHLORIDE. [Suspect]
     Active Substance: DORZOLAMIDE HYDROCHLORIDE
     Dosage: 20 MG/ML, 5 MG/ML
     Route: 050
  8. ALLOPURINOL. [Concomitant]
     Active Substance: ALLOPURINOL
     Dosage: 300 MG, 2 IN 1 D
     Dates: start: 20210422
  9. ATORVASTATIN [Concomitant]
     Active Substance: ATORVASTATIN
     Dosage: 40 MG, 1 IN 1 D
     Dates: start: 20210422
  10. MEMANTINE. [Concomitant]
     Active Substance: MEMANTINE
     Dosage: 10 MG DAILY (10 MG,1 IN 1 D)
     Dates: start: 20210422
  11. BIMATOPROST. [Concomitant]
     Active Substance: BIMATOPROST
     Dosage: 100 MICROGRAMS/ML 1 DOSE PER EYE (2 DOSAGE FORMS, 1 IN 1 D)
     Dates: start: 20210422
  12. RISPERIDONE. [Concomitant]
     Active Substance: RISPERIDONE
     Dosage: HALF A TABLET I THE MORNING AND 1 IN THE EVENING (750 MCG,1 D)
     Dates: start: 20210422
  13. IBUPROFEN. [Concomitant]
     Active Substance: IBUPROFEN
     Dosage: 3 TIMES DAILY (10 %,3 IN 1 D)
     Dates: start: 20210528
  14. OMEPRAZOLE. [Concomitant]
     Active Substance: OMEPRAZOLE
     Dosage: 40 MG DAILY (40 MG, 1 )
     Dates: start: 20210422
  15. EVACAL D3 [Concomitant]
     Dosage: LS00MG/400UNIT (1 DOSAGE FORMS,2 IN 1 D)
     Dates: start: 20210422
  16. SENNA+ [Concomitant]
     Dosage: 1 OR 2 AT NIGHT WHEN REQUIRED (7.5 MG,AS REQUIRED)
     Dates: start: 20210422

REACTIONS (1)
  - Bradycardia [Unknown]
